FAERS Safety Report 8545792-5 (Version None)
Quarter: 2012Q3

REPORT INFORMATION
  Report Type: 
  Country: None (occurrence: None)
  Receive Date: 20120727
  Receipt Date: 20120718
  Transmission Date: 20120928
  Serious: Yes (Other)
  Sender: FDA-Public Use
  Company Number: US-BAXTER-2012BAX010169

PATIENT
  Sex: Female
  Weight: 56.82 kg

DRUGS (21)
  1. CELEBREX [Concomitant]
     Route: 048
  2. ARALAST NP [Suspect]
     Indication: ALPHA-1 ANTI-TRYPSIN DEFICIENCY
     Route: 042
     Dates: start: 20100101
  3. SPIRIVA [Concomitant]
  4. ARALAST NP [Suspect]
     Route: 042
     Dates: start: 20111201
  5. ASPIRIN [Concomitant]
     Route: 048
  6. LYRICA [Concomitant]
     Route: 048
  7. TESSALON [Concomitant]
     Indication: COUGH
     Route: 048
  8. PULMICORT [Concomitant]
     Dosage: 0.5 MG/2 ML
  9. PERFOROMIST [Concomitant]
  10. POTASSIUM CHLORIDE [Concomitant]
     Route: 048
  11. FOSAMAX [Concomitant]
     Route: 048
  12. CALCIUM [Concomitant]
     Dosage: 2 TABLETS
     Route: 048
  13. AVENOX [Concomitant]
     Indication: MULTIPLE SCLEROSIS
  14. ALBUTEROL [Concomitant]
  15. ALBUTEROL [Concomitant]
  16. NASONEX [Concomitant]
  17. TRAZODONE HYDROCHLORIDE [Concomitant]
     Route: 048
  18. BACLOFEN [Concomitant]
     Route: 048
  19. ARALAST NP [Suspect]
     Route: 042
     Dates: start: 20100501
  20. LASIX [Concomitant]
     Route: 048
  21. IMITREX [Concomitant]
     Indication: MIGRAINE
     Route: 048

REACTIONS (8)
  - HERPES ZOSTER [None]
  - JOINT INJURY [None]
  - MULTIPLE SCLEROSIS [None]
  - PULMONARY FUNCTION TEST DECREASED [None]
  - FALL [None]
  - CONTUSION [None]
  - ROTATOR CUFF SYNDROME [None]
  - MULTIPLE SCLEROSIS RELAPSE [None]
